FAERS Safety Report 5893352-7 (Version None)
Quarter: 2008Q3

REPORT INFORMATION
  Report Type: 
  Country: None (occurrence: None)
  Receive Date: 20080919
  Receipt Date: 20080908
  Transmission Date: 20090109
  Serious: Yes (Hospitalization)
  Sender: FDA-Public Use
  Company Number: 20216

PATIENT
  Age: 46 Year
  Sex: Male

DRUGS (7)
  1. VINCRISTINE [Suspect]
  2. METHOTREXATE [Suspect]
     Indication: PROPHYLAXIS
     Dosage: 12 MG  IT
     Route: 038
  3. DOXORUBICIN [Suspect]
  4. CYCLOPHOSPHAMIDE [Suspect]
  5. PREDNISOLONE [Suspect]
  6. PREDNISONE [Suspect]
  7. RITUXIMAB [Suspect]

REACTIONS (7)
  - BK VIRUS INFECTION [None]
  - CRANIAL NERVE DISORDER [None]
  - DIPLOPIA [None]
  - HEADACHE [None]
  - HUMAN POLYOMAVIRUS INFECTION [None]
  - NERVOUS SYSTEM DISORDER [None]
  - TINNITUS [None]
